FAERS Safety Report 10777250 (Version 1)
Quarter: 2015Q1

REPORT INFORMATION
  Report Type: Other
  Country: US (occurrence: US)
  Receive Date: 20150209
  Receipt Date: 20150209
  Transmission Date: 20150721
  Serious: Yes (Death)
  Sender: FDA-Public Use
  Company Number: US-FRI-1000074378

PATIENT
  Age: 48 Year
  Sex: Female

DRUGS (8)
  1. LEVOTHROID [Suspect]
     Active Substance: LEVOTHYROXINE SODIUM
  2. CLONAZEPAM. [Suspect]
     Active Substance: CLONAZEPAM
  3. ACETAMINOPHEN. [Suspect]
     Active Substance: ACETAMINOPHEN
  4. NICOTINE. [Suspect]
     Active Substance: NICOTINE
  5. MIRTAZAPINE. [Suspect]
     Active Substance: MIRTAZAPINE
  6. CARBAMAZEPINE ER [Suspect]
     Active Substance: CARBAMAZEPINE
  7. BENZTROPINE [Suspect]
     Active Substance: BENZTROPINE
  8. ROSUVASTATIN [Suspect]
     Active Substance: ROSUVASTATIN

REACTIONS (3)
  - Completed suicide [Fatal]
  - Cardiac arrest [None]
  - Respiratory arrest [None]
